FAERS Safety Report 23455610 (Version 2)
Quarter: 2024Q1

REPORT INFORMATION
  Report Type: Spontaneous
  Country: US (occurrence: US)
  Receive Date: 20240130
  Receipt Date: 20240207
  Transmission Date: 20240410
  Serious: No
  Sender: FDA-Public Use
  Company Number: US-SANOFI-01918294

PATIENT
  Age: 40 Year
  Sex: Female

DRUGS (1)
  1. LANTUS SOLOSTAR [Suspect]
     Active Substance: INSULIN GLARGINE
     Indication: Type 1 diabetes mellitus
     Dosage: 10 IU, Q12H
     Route: 065
     Dates: start: 20240123

REACTIONS (3)
  - Injection site pain [Not Recovered/Not Resolved]
  - Inappropriate schedule of product administration [Unknown]
  - Device defective [Unknown]

NARRATIVE: CASE EVENT DATE: 20240123
